FAERS Safety Report 14838394 (Version 3)
Quarter: 2018Q2

REPORT INFORMATION
  Report Type: Report from Study
  Country: US (occurrence: US)
  Receive Date: 20180502
  Receipt Date: 20180626
  Transmission Date: 20180711
  Serious: Yes (Hospitalization)
  Sender: FDA-Public Use
  Company Number: US-ACTELION-A-US2018-169560

PATIENT
  Age: 48 Year
  Sex: Female
  Weight: 67.12 kg

DRUGS (28)
  1. OPSUMIT [Suspect]
     Active Substance: MACITENTAN
     Indication: PULMONARY HYPERTENSION
     Dosage: 10 MG, QD
     Route: 048
     Dates: start: 201803
  2. PANTOPRAZOLE [Concomitant]
     Active Substance: PANTOPRAZOLE
     Dosage: 40 MG, BID
  3. REMODULIN [Concomitant]
     Active Substance: TREPROSTINIL
  4. FERROUS SULFATE. [Concomitant]
     Active Substance: FERROUS SULFATE
     Dosage: 325 MG, TID
  5. NOVOLOG [Concomitant]
     Active Substance: INSULIN ASPART
     Dosage: 12 U, UNK
  6. METOPROLOL SUCCINATE. [Concomitant]
     Active Substance: METOPROLOL SUCCINATE
     Dosage: 25 MG, QPM
  7. ATORVASTATIN [Concomitant]
     Active Substance: ATORVASTATIN
     Dosage: 40 MG, QPM
  8. ZOFRAN [Concomitant]
     Active Substance: ONDANSETRON HYDROCHLORIDE
     Dosage: 4 MG, Q12HRS
  9. EPOPROSTENOL TEVA [Concomitant]
  10. CHOLECALCIFEROL [Concomitant]
     Active Substance: CHOLECALCIFEROL
     Dosage: 2000 IU, QD
  11. LORATADINE. [Concomitant]
     Active Substance: LORATADINE
     Dosage: 10 MG, QD
  12. MAGNESIUM OXIDE. [Concomitant]
     Active Substance: MAGNESIUM OXIDE
     Dosage: 600 MG, QD
  13. PREDNISONE. [Concomitant]
     Active Substance: PREDNISONE
     Dosage: 20 MG, QD
  14. ORENITRAM [Concomitant]
     Active Substance: TREPROSTINIL
  15. DUONEB [Concomitant]
     Active Substance: ALBUTEROL SULFATE\IPRATROPIUM BROMIDE
     Dosage: UNK
  16. TIKOSYN [Concomitant]
     Active Substance: DOFETILIDE
     Dosage: 125 MCG, BID
  17. POTASSIUM CHLORIDE. [Concomitant]
     Active Substance: POTASSIUM CHLORIDE
     Dosage: 40 MEQ, QID
  18. PROAIR HFA [Concomitant]
     Active Substance: ALBUTEROL SULFATE
     Dosage: UNK
  19. REVATIO [Concomitant]
     Active Substance: SILDENAFIL CITRATE
     Dosage: 40 MG, TID
  20. FLONASE [Concomitant]
     Active Substance: FLUTICASONE PROPIONATE
  21. HUMULIN N [Concomitant]
     Active Substance: INSULIN HUMAN
     Dosage: 15 U, QD
  22. METOPROLOL SUCCINATE. [Concomitant]
     Active Substance: METOPROLOL SUCCINATE
     Dosage: 50 MG, QAM
  23. SPIRONOLACTONE. [Concomitant]
     Active Substance: SPIRONOLACTONE
     Dosage: 25 MG, QD
  24. BUDESONIDE W/FORMOTEROL [Concomitant]
     Active Substance: BUDESONIDE\FORMOTEROL
     Dosage: 2 PUFFS, BID
  25. PERIDEX [Concomitant]
     Active Substance: CHLORHEXIDINE GLUCONATE
     Dosage: 15 ML, BID
  26. SINGULAIR [Concomitant]
     Active Substance: MONTELUKAST SODIUM
     Dosage: 10 MG, QD
  27. MYCOPHENOLATE MOFETIL. [Concomitant]
     Active Substance: MYCOPHENOLATE MOFETIL
     Dosage: 500 MG, BID
  28. TORSEMIDE. [Concomitant]
     Active Substance: TORSEMIDE
     Dosage: 40 MG, BID

REACTIONS (15)
  - Disease progression [Unknown]
  - Dyspnoea exertional [Unknown]
  - Pain in jaw [Unknown]
  - Pulmonary arterial hypertension [Unknown]
  - Emergency care [Unknown]
  - Chronic respiratory failure [Unknown]
  - Headache [Unknown]
  - Laboratory test abnormal [Unknown]
  - Pulmonary hypertension [Unknown]
  - Dyspnoea [Unknown]
  - Electrolyte imbalance [Unknown]
  - Fluid overload [Unknown]
  - Oxygen saturation decreased [Unknown]
  - Parainfluenzae virus infection [Unknown]
  - Hypokalaemia [Recovered/Resolved]
